FAERS Safety Report 10614307 (Version 1)
Quarter: 2014Q4

REPORT INFORMATION
  Report Type: Spontaneous
  Country: US (occurrence: US)
  Receive Date: 20141128
  Receipt Date: 20141128
  Transmission Date: 20150529
  Serious: Yes (Other)
  Sender: FDA-Public Use
  Company Number: PHEH2014US023079

PATIENT
  Sex: Female

DRUGS (1)
  1. EXJADE [Suspect]
     Active Substance: DEFERASIROX
     Indication: MYELODYSPLASTIC SYNDROME
     Route: 065

REACTIONS (9)
  - Blood creatinine increased [Unknown]
  - Marrow hyperplasia [Unknown]
  - Subclavian vein thrombosis [Unknown]
  - Iron overload [Unknown]
  - Renal disorder [Unknown]
  - Pyrexia [Unknown]
  - Blood lactate dehydrogenase increased [Unknown]
  - Thrombosis [Unknown]
  - Drug intolerance [Unknown]
